FAERS Safety Report 4666395-9 (Version None)
Quarter: 2005Q2

REPORT INFORMATION
  Report Type: 
  Country: None (occurrence: None)
  Receive Date: 20050519
  Receipt Date: 20050426
  Transmission Date: 20051028
  Serious: Yes (Disabling)
  Sender: FDA-Public Use
  Company Number: 2005GB00831

PATIENT
  Age: 18399 Day
  Sex: Male
  Weight: 114 kg

DRUGS (7)
  1. OMEPRAZOLE [Suspect]
     Indication: GASTROOESOPHAGEAL REFLUX DISEASE
     Route: 048
     Dates: start: 20040901, end: 20050501
  2. WARFARIN [Concomitant]
     Indication: DEEP VEIN THROMBOSIS
     Route: 048
     Dates: start: 19970101
  3. WARFARIN [Concomitant]
     Indication: PULMONARY EMBOLISM
     Route: 048
     Dates: start: 19970101
  4. DOMPERIDONE [Concomitant]
     Indication: GASTROOESOPHAGEAL REFLUX DISEASE
     Route: 048
     Dates: start: 20040901
  5. BECLOMETHASONE DIPROPIONATE [Concomitant]
     Indication: SEASONAL ALLERGY
     Route: 045
     Dates: start: 20040601, end: 20040801
  6. CETIRIZINE HCL [Concomitant]
     Indication: SEASONAL ALLERGY
     Route: 065
     Dates: start: 20040601, end: 20040801
  7. LORATADINE [Concomitant]
     Indication: SEASONAL ALLERGY
     Route: 065
     Dates: start: 20040601, end: 20040801

REACTIONS (2)
  - GOUT [None]
  - THERAPY NON-RESPONDER [None]
